FAERS Safety Report 19977839 (Version 1)
Quarter: 2021Q4

REPORT INFORMATION
  Report Type: Report from Study
  Country: US (occurrence: US)
  Receive Date: 20211020
  Receipt Date: 20211020
  Transmission Date: 20220303
  Serious: Yes (Death)
  Sender: FDA-Public Use
  Company Number: US-BAYER-2021A230731

PATIENT
  Age: 34 Year
  Sex: Male

DRUGS (1)
  1. ASPIRIN [Suspect]
     Active Substance: ASPIRIN

REACTIONS (4)
  - Gastrointestinal haemorrhage [Fatal]
  - Renal failure [Fatal]
  - Hepatic failure [Fatal]
  - Respiratory failure [Fatal]
